FAERS Safety Report 8967832 (Version 3)
Quarter: 2013Q1

REPORT INFORMATION
  Report Type: Spontaneous
  Country: JP (occurrence: JP)
  Receive Date: 20121218
  Receipt Date: 20130221
  Transmission Date: 20140127
  Serious: Yes (Death, Hospitalization)
  Sender: FDA-Public Use
  Company Number: JP-B.I. PHARMACEUTICALS,INC./RIDGEFIELD-2012-BI-02155NB

PATIENT
  Age: 77 Year
  Sex: Male
  Weight: 44.95 kg

DRUGS (15)
  1. PRADAXA [Suspect]
     Indication: ATRIAL FIBRILLATION
     Dosage: 220 MG
     Route: 048
     Dates: end: 20121129
  2. BUFFERIN [Suspect]
     Indication: PERIPHERAL ARTERIAL OCCLUSIVE DISEASE
     Dosage: 81 MG
     Route: 048
     Dates: end: 20121129
  3. ARTIST [Concomitant]
     Indication: HYPERTROPHIC CARDIOMYOPATHY
     Dosage: 5 MG
     Route: 048
     Dates: end: 20121129
  4. HALFDIGOXIN [Concomitant]
     Indication: ATRIAL FIBRILLATION
     Dosage: 0.0625 MG
     Route: 048
     Dates: end: 20121129
  5. LUPRAC [Concomitant]
     Indication: HYPERTROPHIC CARDIOMYOPATHY
     Dosage: 8 MG
     Route: 048
     Dates: end: 20121129
  6. GASPORT-D [Concomitant]
     Indication: GASTRIC DISORDER
     Dosage: 20 MG
     Route: 065
     Dates: end: 20121129
  7. EMPYNASE P [Concomitant]
     Dosage: 54000 U
     Route: 048
     Dates: end: 20121129
  8. EPADEL S [Concomitant]
     Indication: DYSLIPIDAEMIA
     Dosage: 1200 MG
     Route: 048
     Dates: end: 20121129
  9. MUCOSTA [Concomitant]
     Indication: GASTRIC DISORDER
     Dosage: 200 MG
     Route: 048
     Dates: end: 20121129
  10. NU-LOTAN [Concomitant]
     Indication: HYPERTROPHIC CARDIOMYOPATHY
     Dosage: 12.5 MG
     Route: 048
     Dates: end: 20121129
  11. SODIUM CHLORIDE [Concomitant]
     Indication: HYPONATRAEMIA
     Dosage: 2 G
     Route: 065
     Dates: end: 20121129
  12. MAGLAX [Concomitant]
     Indication: CONSTIPATION
     Dosage: 750 MG
     Route: 065
     Dates: end: 20121129
  13. PURSENNID [Concomitant]
     Indication: CONSTIPATION
     Dosage: 24 MG
     Route: 065
     Dates: end: 20121129
  14. PERIACTIN [Concomitant]
     Indication: DECREASED APPETITE
     Dosage: 1 G
     Route: 065
     Dates: end: 20121129
  15. WARFARIN POTASSIUM [Concomitant]
     Route: 065

REACTIONS (6)
  - Pulmonary alveolar haemorrhage [Fatal]
  - Interstitial lung disease [Fatal]
  - Pyrexia [Fatal]
  - Hypoxia [Fatal]
  - Blood pressure decreased [Fatal]
  - Oliguria [Fatal]
